FAERS Safety Report 10765865 (Version 1)
Quarter: 2015Q1

REPORT INFORMATION
  Report Type: Other
  Country: US (occurrence: US)
  Receive Date: 20150205
  Receipt Date: 20150205
  Transmission Date: 20150721
  Serious: No
  Sender: FDA-Public Use
  Company Number: US-ACORDA-ACO_102957_2014

PATIENT
  Sex: Female
  Weight: 54.42 kg

DRUGS (2)
  1. COPAXONE [Concomitant]
     Active Substance: GLATIRAMER ACETATE
     Indication: PRODUCT USED FOR UNKNOWN INDICATION
     Dosage: UNK
  2. AMPYRA [Suspect]
     Active Substance: DALFAMPRIDINE
     Indication: GAIT DISTURBANCE
     Dosage: 10 MG, BID
     Route: 048
     Dates: start: 20131118, end: 201312

REACTIONS (9)
  - Pain [Recovered/Resolved]
  - Drug ineffective [Unknown]
  - Contusion [Recovering/Resolving]
  - General physical health deterioration [Recovered/Resolved]
  - Wheelchair user [Recovering/Resolving]
  - Drug dose omission [Recovered/Resolved]
  - Hypokinesia [Recovering/Resolving]
  - Fall [Recovering/Resolving]
  - Gait disturbance [Recovering/Resolving]

NARRATIVE: CASE EVENT DATE: 2013
